FAERS Safety Report 6293466-6 (Version None)
Quarter: 2009Q3

REPORT INFORMATION
  Report Type: 
  Country: None (occurrence: None)
  Receive Date: 20090803
  Receipt Date: 20080328
  Transmission Date: 20100115
  Serious: Yes (Other)
  Sender: FDA-Public Use
  Company Number: US-ASTRAZENECA-2007UW18723

PATIENT
  Age: 35 Year
  Sex: Female
  Weight: 132 kg

DRUGS (16)
  1. SEROQUEL [Suspect]
     Route: 048
     Dates: start: 20010619
  2. LOPID [Concomitant]
     Indication: HYPERTRIGLYCERIDAEMIA
     Route: 048
     Dates: start: 20030313
  3. LASIX [Concomitant]
     Dates: start: 20060405
  4. PHENOBARBITAL [Concomitant]
     Indication: CONVULSION
     Dosage: 65 MG TO 120 MG
     Dates: start: 20000604
  5. GLUCOVANCE [Concomitant]
     Dosage: 2.5/500 TWO B.I.D
     Dates: start: 20060405
  6. ACTOS [Concomitant]
     Dates: start: 20060405
  7. ZOLOFT [Concomitant]
     Dates: start: 20060405
  8. RISPERDAL [Concomitant]
     Dates: start: 20060405
  9. PREDNISONE [Concomitant]
     Dosage: 10 MG TO 60 MG
     Dates: start: 20030313
  10. NAPROSYN [Concomitant]
     Route: 048
     Dates: start: 20030313
  11. PROMETHAZINE [Concomitant]
     Dosage: 25 MG Q 6 H PRN
     Dates: start: 20030313
  12. VITAMIN B-12 [Concomitant]
     Indication: NEUROPATHY PERIPHERAL
     Dosage: 1 CC
     Route: 030
     Dates: start: 20051220
  13. CELEXA [Concomitant]
     Dates: start: 20010619
  14. DEPAKOTE [Concomitant]
     Dates: start: 20010619
  15. MICARDIS [Concomitant]
     Indication: PROTEINURIA
     Dosage: 80/25 MG EVERYDAY
     Dates: start: 20060424
  16. MICARDIS [Concomitant]
     Indication: HYPERTENSION
     Dosage: 80/25 MG EVERYDAY
     Dates: start: 20060424

REACTIONS (6)
  - DIABETES MELLITUS [None]
  - DIABETES MELLITUS INADEQUATE CONTROL [None]
  - DIABETIC EYE DISEASE [None]
  - HYPOGLYCAEMIA [None]
  - NEPHROGENIC DIABETES INSIPIDUS [None]
  - NEUROPATHY PERIPHERAL [None]
